FAERS Safety Report 19458273 (Version 1)
Quarter: 2021Q2

REPORT INFORMATION
  Report Type: Spontaneous
  Country: JP (occurrence: JP)
  Receive Date: 20210624
  Receipt Date: 20210624
  Transmission Date: 20210717
  Serious: Yes (Hospitalization)
  Sender: FDA-Public Use
  Company Number: JP-SA-2018SA292649

PATIENT
  Age: 70 Year
  Sex: Female

DRUGS (11)
  1. RIFAMPICIN [Suspect]
     Active Substance: RIFAMPIN
     Indication: MYCOBACTERIUM AVIUM COMPLEX INFECTION
     Dosage: 300 MG, QD
     Route: 065
  2. ETHAMBUTOL [Interacting]
     Active Substance: ETHAMBUTOL HYDROCHLORIDE
     Indication: MYCOBACTERIUM AVIUM COMPLEX INFECTION
     Dosage: 625 MG, QD
     Route: 065
  3. PRAVASTATIN. [Concomitant]
     Active Substance: PRAVASTATIN
     Dosage: UNK
  4. PHENOBARBITAL. [Interacting]
     Active Substance: PHENOBARBITAL
     Indication: EPILEPSY
     Dosage: 75 MG, QD
     Route: 065
  5. L?GLUTAMINE [GLUTAMIC ACID] [Concomitant]
     Active Substance: GLUTAMIC ACID
     Dosage: UNK
  6. BENIDIPINE [Concomitant]
     Active Substance: BENIDIPINE
     Dosage: UNK
  7. PHENYTOIN. [Interacting]
     Active Substance: PHENYTOIN
     Dosage: 150 MG, QD
     Route: 065
  8. CANDESARTAN. [Concomitant]
     Active Substance: CANDESARTAN
  9. PROPRANOLOL [Concomitant]
     Active Substance: PROPRANOLOL HYDROCHLORIDE
     Dosage: UNK
  10. PHENYTOIN. [Interacting]
     Active Substance: PHENYTOIN
     Indication: EPILEPSY
     Dosage: 225 MG, QD
     Route: 065
  11. CLARITHROMYCIN. [Interacting]
     Active Substance: CLARITHROMYCIN
     Indication: MYCOBACTERIUM AVIUM COMPLEX INFECTION
     Dosage: 800 MG, QD
     Route: 065

REACTIONS (2)
  - Drug interaction [Recovered/Resolved]
  - Anticonvulsant drug level increased [Recovered/Resolved]
